FAERS Safety Report 8790381 (Version 2)
Quarter: 2012Q4

REPORT INFORMATION
  Report Type: 
  Country: GB (occurrence: GB)
  Receive Date: 20120917
  Receipt Date: 20121105
  Transmission Date: 20130627
  Serious: Yes (Hospitalization, Other)
  Sender: FDA-Public Use
  Company Number: GB-ACCORD-014655

PATIENT
  Age: 94 Year
  Sex: Female

DRUGS (9)
  1. SIMVASTATIN [Suspect]
     Indication: HYPERCHOLESTEREMIA
     Dosage: At night,
40 mg, UNK
     Route: 048
     Dates: start: 20100426
  2. ALLOPURINOL [Concomitant]
  3. ASPIRIN [Concomitant]
  4. FERROUS SULPHATE [Concomitant]
  5. MIRTAZAPINE [Concomitant]
  6. SLOZEM [Interacting]
     Indication: HYPERTENSION
     Dosage: In the morning, 120 mg, QD
     Route: 048
     Dates: start: 20100426
  7. OMEPRAZOLE [Concomitant]
  8. FUROSEMIDE [Concomitant]
  9. RAMIPRIL [Concomitant]

REACTIONS (5)
  - Rhabdomyolysis [Recovering/Resolving]
  - Swelling face [Recovering/Resolving]
  - Contusion [Recovering/Resolving]
  - Drug interaction [Unknown]
  - Fall [Unknown]
